FAERS Safety Report 8227627-3 (Version None)
Quarter: 2012Q1

REPORT INFORMATION
  Report Type: 
  Country: None (occurrence: None)
  Receive Date: 20120322
  Receipt Date: 20120306
  Transmission Date: 20120608
  Serious: No
  Sender: FDA-Public Use
  Company Number: US-B.I. PHARMACEUTICALS,INC./RIDGEFIELD-2012-BP-03554BP

PATIENT
  Sex: Female
  Weight: 68.49 kg

DRUGS (3)
  1. SPIRIVA [Suspect]
     Indication: CHRONIC OBSTRUCTIVE PULMONARY DISEASE
     Dosage: 18 MCG
     Route: 055
     Dates: start: 20120104, end: 20120220
  2. LOVAZA [Concomitant]
     Indication: ROUTINE HEALTH MAINTENANCE
  3. C-THYROID [Concomitant]
     Indication: HYPOTHYROIDISM

REACTIONS (1)
  - DYSPNOEA [None]
